FAERS Safety Report 7960642-3 (Version None)
Quarter: 2011Q4

REPORT INFORMATION
  Report Type: 
  Country: None (occurrence: None)
  Receive Date: 20111206
  Receipt Date: 20111128
  Transmission Date: 20120403
  Serious: Yes (Other)
  Sender: FDA-Public Use
  Company Number: US-ASTRAZENECA-2011SE36793

PATIENT
  Age: 70 Year
  Sex: Female

DRUGS (4)
  1. SYMBICORT [Suspect]
     Dosage: ONE PUFF, UNKNOWN FREQUENCY
     Route: 055
  2. NEXIUM [Suspect]
     Route: 048
  3. SYMBICORT [Suspect]
     Dosage: TWO PUFFS, UNKNOWN FREQUENCY
     Route: 055
  4. SYMBICORT [Suspect]
     Dosage: 160 MCG, 2 PUFFS, BID
     Route: 055

REACTIONS (14)
  - TINNITUS [None]
  - DYSPNOEA [None]
  - LEUKAEMIA [None]
  - FLUSHING [None]
  - DIZZINESS [None]
  - HEADACHE [None]
  - NAUSEA [None]
  - CHEST PAIN [None]
  - MALAISE [None]
  - TREMOR [None]
  - FEELING JITTERY [None]
  - EYE DISCHARGE [None]
  - OROPHARYNGEAL PAIN [None]
  - NERVOUSNESS [None]
